FAERS Safety Report 4317013-0 (Version None)
Quarter: 2004Q1

REPORT INFORMATION
  Report Type: 
  Country: None (occurrence: None)
  Receive Date: 20040312
  Receipt Date: 20040218
  Transmission Date: 20041129
  Serious: Yes (Other)
  Sender: FDA-Public Use
  Company Number: HQWYE227420FEB04

PATIENT
  Age: 11 Year

DRUGS (4)
  1. RECOMBINANT HUMAN INTERLEUKIN-11 (RHIL-11) [Suspect]
     Indication: APLASTIC ANAEMIA
     Dosage: 74 MCG/KG/D, SUBCUTANEOUS
     Route: 058
  2. ATG (ANTILYMPHOCYTE IMMUNOGLOBULIN (HORSE), ) [Suspect]
     Indication: APLASTIC ANAEMIA
     Dosage: 20 MG/KG 1X PER 1 DAY, INTRAVENOUS
     Route: 042
  3. GM-CSF (GRANULOCYTE MACROPHAGE COLONY STIM FACTOR, ) [Suspect]
     Indication: APLASTIC ANAEMIA
     Dosage: 250 MCG/M2/DAY, SUBCUTANEOUS
     Route: 058
  4. CYCLOSPORINE [Concomitant]

REACTIONS (3)
  - DRUG TOXICITY [None]
  - FATIGUE [None]
  - OEDEMA PERIPHERAL [None]
